FAERS Safety Report 11219304 (Version 1)
Quarter: 2015Q2

REPORT INFORMATION
  Report Type: Spontaneous
  Country: US (occurrence: US)
  Receive Date: 20150625
  Receipt Date: 20150625
  Transmission Date: 20150821
  Serious: Yes (Other)
  Sender: FDA-Public Use
  Company Number: US-UNITED THERAPEUTICS-UNT-2015-007510

PATIENT
  Sex: Female

DRUGS (1)
  1. REMODULIN [Suspect]
     Active Substance: TREPROSTINIL
     Indication: PULMONARY ARTERIAL HYPERTENSION
     Dosage: 0.0495 ?G/KG, CONTINUING
     Route: 058
     Dates: start: 20130124

REACTIONS (1)
  - Bladder mass [Unknown]

NARRATIVE: CASE EVENT DATE: 20150619
